FAERS Safety Report 7866374-4 (Version None)
Quarter: 2011Q4

REPORT INFORMATION
  Report Type: 
  Country: None (occurrence: None)
  Receive Date: 20111028
  Receipt Date: 20110526
  Transmission Date: 20120403
  Serious: No
  Sender: FDA-Public Use
  Company Number: US-GLAXOSMITHKLINE-A0930422A

PATIENT
  Age: 69 Year
  Sex: Female

DRUGS (6)
  1. ADVAIR DISKUS 100/50 [Suspect]
     Dosage: 2PUFF TWICE PER DAY
     Route: 055
     Dates: start: 20110526
  2. BIOTENE [Concomitant]
  3. CALCIUM SUPPLEMENT [Concomitant]
  4. SPIRIVA [Concomitant]
  5. OXYGEN [Concomitant]
  6. ADVAIR DISKUS 100/50 [Suspect]
     Indication: CHRONIC OBSTRUCTIVE PULMONARY DISEASE
     Dosage: 1PUFF TWICE PER DAY
     Route: 055
     Dates: start: 20011201, end: 20110525

REACTIONS (3)
  - BONE DENSITY DECREASED [None]
  - WEIGHT DECREASED [None]
  - CANDIDIASIS [None]
